FAERS Safety Report 25437919 (Version 1)
Quarter: 2025Q2

REPORT INFORMATION
  Report Type: Spontaneous
  Country: US (occurrence: US)
  Receive Date: 20250616
  Receipt Date: 20250616
  Transmission Date: 20250716
  Serious: No
  Sender: ROCHE
  Company Number: US-ROCHE-10000305161

PATIENT
  Sex: Female

DRUGS (1)
  1. RITUXAN [Suspect]
     Active Substance: RITUXIMAB
     Indication: Multiple sclerosis
     Route: 065
     Dates: start: 202412

REACTIONS (4)
  - Rash papular [Recovering/Resolving]
  - Off label use [Unknown]
  - Photosensitivity reaction [Unknown]
  - Skin reaction [Recovering/Resolving]
